FAERS Safety Report 21256838 (Version 3)
Quarter: 2022Q4

REPORT INFORMATION
  Report Type: Spontaneous
  Country: CA (occurrence: CA)
  Receive Date: 20220826
  Receipt Date: 20221003
  Transmission Date: 20230113
  Serious: Yes (Other)
  Sender: FDA-Public Use
  Company Number: CA-CELLTRION INC.-2022CA005578

PATIENT

DRUGS (3)
  1. INFLECTRA [Suspect]
     Active Substance: INFLIXIMAB-DYYB
     Indication: Crohn^s disease
     Dosage: 7500 UG/KG (7.5 MG/KG), EVERY 5 WEEKS
     Route: 042
  2. INFLECTRA [Suspect]
     Active Substance: INFLIXIMAB-DYYB
     Dosage: 7500 UG/KG (7.5 MG/KG), EVERY 5 WEEKS
     Route: 042
     Dates: start: 20220309
  3. INFLECTRA [Suspect]
     Active Substance: INFLIXIMAB-DYYB
     Dosage: 7500 UG/KG (7.5 MG/KG), EVERY 5 WEEKS
     Route: 042
     Dates: start: 20220628

REACTIONS (6)
  - Umbilical hernia [Unknown]
  - Incision site discharge [Unknown]
  - Wound complication [Unknown]
  - Off label use [Unknown]
  - Off label use [Unknown]
  - Intentional product use issue [Unknown]

NARRATIVE: CASE EVENT DATE: 20220801
